FAERS Safety Report 7830642-2 (Version None)
Quarter: 2011Q4

REPORT INFORMATION
  Report Type: 
  Country: None (occurrence: None)
  Receive Date: 20111021
  Receipt Date: 20111012
  Transmission Date: 20120403
  Serious: Yes (Death)
  Sender: FDA-Public Use
  Company Number: PT-ABBOTT-11P-130-0863869-00

PATIENT
  Age: 45 Year
  Sex: Female

DRUGS (7)
  1. NORDAZEPAM [Suspect]
     Indication: MENTAL DISORDER
     Route: 065
  2. VALPROATE SODIUM [Suspect]
     Indication: EPILEPSY
  3. OXAZEPAM [Suspect]
     Indication: MENTAL DISORDER
     Route: 065
  4. TIAPRIDE HYDROCHLORIDE [Suspect]
     Indication: MENTAL DISORDER
     Route: 065
  5. VALPROATE SODIUM [Suspect]
     Indication: MENTAL DISORDER
     Route: 065
  6. MIRTAZAPINE [Suspect]
     Indication: MENTAL DISORDER
     Route: 065
  7. ETHANOL [Suspect]
     Indication: ALCOHOL USE
     Route: 065

REACTIONS (3)
  - COMPLETED SUICIDE [None]
  - INTENTIONAL OVERDOSE [None]
  - TOXICITY TO VARIOUS AGENTS [None]
